FAERS Safety Report 19294919 (Version 1)
Quarter: 2021Q2

REPORT INFORMATION
  Report Type: Spontaneous
  Country: FR (occurrence: FR)
  Receive Date: 20210524
  Receipt Date: 20210524
  Transmission Date: 20210717
  Serious: Yes (Hospitalization)
  Sender: FDA-Public Use
  Company Number: FR-TEVA-2021-FR-1914019

PATIENT
  Age: 61 Year
  Sex: Female
  Weight: 53 kg

DRUGS (2)
  1. 5?FU [Suspect]
     Active Substance: FLUOROURACIL
     Indication: ANAL CANCER
     Route: 065
     Dates: start: 20210406
  2. MITOMYCINE SUBSTIPHAM 20 MG [Suspect]
     Active Substance: MITOMYCIN
     Indication: ANAL CANCER
     Dosage: 10 MG/M2
     Route: 042
     Dates: end: 20210406

REACTIONS (4)
  - Diarrhoea [Unknown]
  - Asthenia [Unknown]
  - Agranulocytosis [Unknown]
  - Vomiting [Unknown]

NARRATIVE: CASE EVENT DATE: 20210413
